FAERS Safety Report 7169737-8 (Version None)
Quarter: 2010Q4

REPORT INFORMATION
  Report Type: 
  Country: None (occurrence: None)
  Receive Date: 20101217
  Receipt Date: 20101213
  Transmission Date: 20110411
  Serious: Yes (Hospitalization)
  Sender: FDA-Public Use
  Company Number: US-PERRIGO-10US015311

PATIENT
  Sex: Female
  Weight: 49.433 kg

DRUGS (3)
  1. OXYMETAZOLINE HCL [Suspect]
     Indication: DYSPNOEA
     Dosage: 2 SPRAYS IN EACH NOSTRIL, AS NEEDED
     Route: 045
     Dates: start: 20101127, end: 20101128
  2. UNIDENTIFIED ARTHRITIS MEDICATION [Concomitant]
     Indication: ARTHRITIS
     Dosage: UNK
     Route: 065
  3. UNSPECIFIED INJECTION [Concomitant]
     Indication: LIMB DISCOMFORT
     Route: 030

REACTIONS (1)
  - DYSPNOEA [None]
